FAERS Safety Report 4458538-7 (Version None)
Quarter: 2004Q3

REPORT INFORMATION
  Report Type: 
  Country: None (occurrence: None)
  Receive Date: 20040922
  Receipt Date: 20030910
  Transmission Date: 20050211
  Serious: Yes (Hospitalization)
  Sender: FDA-Public Use
  Company Number: US-SHR-03-011371

PATIENT
  Age: 51 Year
  Sex: Female
  Weight: 58 kg

DRUGS (4)
  1. BETASERON [Suspect]
     Indication: MULTIPLE SCLEROSIS
     Dosage: 8 MIU, EVERY 2D, SUBCUTANEOUS
     Route: 058
     Dates: start: 20020829
  2. IBUPROFEN [Concomitant]
  3. DETROL [Concomitant]
  4. ASPERCREME (TROLAMINE SALICYLATE) [Concomitant]

REACTIONS (2)
  - DISEASE PROGRESSION [None]
  - FALL [None]
